FAERS Safety Report 5036958-X (Version None)
Quarter: 2006Q2

REPORT INFORMATION
  Report Type: 
  Country: None (occurrence: None)
  Receive Date: 20060622
  Receipt Date: 20060612
  Transmission Date: 20061013
  Serious: Yes (Hospitalization, Other)
  Sender: FDA-Public Use
  Company Number: HQWYE618629JUL04

PATIENT
  Age: 56 Year
  Sex: Female
  Weight: 50.85 kg

DRUGS (1)
  1. PREMPRO [Suspect]
     Indication: HORMONE REPLACEMENT THERAPY
     Dates: end: 20010901

REACTIONS (3)
  - BREAST CANCER FEMALE [None]
  - BREAST CANCER RECURRENT [None]
  - BREAST NECROSIS [None]
